FAERS Safety Report 8389664-8 (Version None)
Quarter: 2012Q2

REPORT INFORMATION
  Report Type: 
  Country: None (occurrence: None)
  Receive Date: 20120528
  Receipt Date: 20110906
  Transmission Date: 20120825
  Serious: Yes (Hospitalization)
  Sender: FDA-Public Use
  Company Number: CA-ROCHE-757178

PATIENT
  Sex: Male
  Weight: 100.1 kg

DRUGS (7)
  1. AVASTIN [Suspect]
     Route: 042
  2. TEMOZOLOMIDE [Suspect]
     Indication: GLIOBLASTOMA
     Dosage: LAST DOSE RECEIVED ON 31 JAN 2011
     Route: 048
  3. TEGRETOL [Concomitant]
  4. KEPPRA [Concomitant]
  5. RANITIDINE [Concomitant]
  6. AVASTIN [Suspect]
     Indication: GLIOBLASTOMA
     Dosage: DOSE FORM: INFUSION. LAST DOSE PRIOR TO SAE: 27TH JANUARY 2011
     Route: 042
     Dates: start: 20101101, end: 20110210
  7. METFORMIN HCL [Concomitant]

REACTIONS (1)
  - BRAIN OEDEMA [None]
